FAERS Safety Report 9485991 (Version 1)
Quarter: 2013Q3

REPORT INFORMATION
  Report Type: Spontaneous
  Country: US (occurrence: US)
  Receive Date: 20130829
  Receipt Date: 20130829
  Transmission Date: 20140515
  Serious: Yes (Hospitalization)
  Sender: FDA-Public Use
  Company Number: US-ELI_LILLY_AND_COMPANY-US201308006718

PATIENT
  Sex: Female

DRUGS (1)
  1. FORTEO [Suspect]
     Indication: OSTEOPOROSIS

REACTIONS (5)
  - Gastric disorder [Unknown]
  - Myalgia [Unknown]
  - Blood calcium increased [Unknown]
  - Blood parathyroid hormone increased [Unknown]
  - Hyperglycaemia [Unknown]
